FAERS Safety Report 22192119 (Version 5)
Quarter: 2023Q2

REPORT INFORMATION
  Report Type: Spontaneous
  Country: US (occurrence: US)
  Receive Date: 20230410
  Receipt Date: 20230509
  Transmission Date: 20230721
  Serious: Yes (Other)
  Sender: FDA-Public Use
  Company Number: US-PFIZER INC-PV202300064469

PATIENT
  Age: 85 Year
  Sex: Female

DRUGS (2)
  1. IBRANCE [Suspect]
     Active Substance: PALBOCICLIB
     Dosage: 125 MG, DAILY
     Route: 048
  2. IBRANCE [Suspect]
     Active Substance: PALBOCICLIB
     Dosage: 100 MG, CYCLIC (MUST HAVE TAKEN IT 2 WEEKS AND THEN DIDN^T TAKE IT FOR A WEEK)

REACTIONS (5)
  - Dementia [Unknown]
  - Off label use [Unknown]
  - Memory impairment [Unknown]
  - Agitation [Unknown]
  - Product dose omission issue [Unknown]
